FAERS Safety Report 6016935-2 (Version None)
Quarter: 2008Q4

REPORT INFORMATION
  Report Type: 
  Country: None (occurrence: None)
  Receive Date: 20081219
  Receipt Date: 20050202
  Transmission Date: 20090506
  Serious: No
  Sender: FDA-Public Use
  Company Number: TEST00205000342

PATIENT
  Sex: Female

DRUGS (3)
  1. ANDROGEL [Suspect]
     Indication: ACCIDENTAL EXPOSURE
     Dosage: 15 GRAM(S) DAILY TRANSCUTANEOUS DAILY DOSE: 15 GRAM(S)
     Dates: start: 20000101, end: 20050101
  2. ANDROGEL [Suspect]
     Indication: ILL-DEFINED DISORDER
     Dosage: 15 GRAM(S) DAILY TRANSCUTANEOUS DAILY DOSE: 15 GRAM(S)
     Dates: start: 20000101, end: 20050101
  3. AMOXICILLIN [Concomitant]

REACTIONS (7)
  - BLOOD TESTOSTERONE INCREASED [None]
  - ENLARGED CLITORIS [None]
  - HAIR GROWTH ABNORMAL [None]
  - HYPERTRICHOSIS [None]
  - MUSCLE DISORDER [None]
  - PATERNAL DRUGS AFFECTING FOETUS [None]
  - PRECOCIOUS PUBERTY [None]
